FAERS Safety Report 8295341-4 (Version None)
Quarter: 2012Q2

REPORT INFORMATION
  Report Type: 
  Country: None (occurrence: None)
  Receive Date: 20120418
  Receipt Date: 20120321
  Transmission Date: 20120825
  Serious: Yes (Life-Threatening, Hospitalization)
  Sender: FDA-Public Use
  Company Number: DE-BAXTER-2012BAX000147

PATIENT
  Sex: Female
  Weight: 80 kg

DRUGS (2)
  1. CYCLOPHOSPHAMIDE [Suspect]
     Route: 042
     Dates: start: 20120315
  2. CYCLOPHOSPHAMIDE [Suspect]
     Route: 042
     Dates: start: 20120120

REACTIONS (1)
  - NEUTROPENIA [None]
